FAERS Safety Report 4843472-0 (Version None)
Quarter: 2005Q4

REPORT INFORMATION
  Report Type: 
  Country: None (occurrence: None)
  Receive Date: 20051027
  Receipt Date: 20050818
  Transmission Date: 20060501
  Serious: No
  Sender: FDA-Public Use
  Company Number: ZICO001284

PATIENT
  Sex: Male

DRUGS (3)
  1. PRIALT [Suspect]
     Indication: DRUG USE FOR UNKNOWN INDICATION
     Dosage: 0.017 MCG/HR INTRATHECAL
     Route: 037
     Dates: start: 20050809
  2. CLONIDINE [Concomitant]
  3. DILAUDID (HYDROMORPONE) [Concomitant]

REACTIONS (1)
  - PAIN [None]
